FAERS Safety Report 14658892 (Version 1)
Quarter: 2018Q1

REPORT INFORMATION
  Report Type: Spontaneous
  Country: US (occurrence: US)
  Receive Date: 20180320
  Receipt Date: 20180320
  Transmission Date: 20180509
  Serious: No
  Sender: FDA-Public Use
  Company Number: US-HORIZON-MIG-0006-2018

PATIENT
  Sex: Male

DRUGS (1)
  1. MIGERGOT [Suspect]
     Active Substance: CAFFEINE\ERGOTAMINE TARTRATE
     Indication: MIGRAINE
     Dosage: REDUCED TO 1/2 SUPPOSITORY

REACTIONS (1)
  - Medication overuse headache [Unknown]
